FAERS Safety Report 21326596 (Version 1)
Quarter: 2022Q3

REPORT INFORMATION
  Report Type: Report from Study
  Country: MX (occurrence: None)
  Receive Date: 20220913
  Receipt Date: 20220913
  Transmission Date: 20221026
  Serious: Yes (Other)
  Sender: FDA-Public Use
  Company Number: MX-Orion Corporation ORION PHARMA-ENTC2022-0179

PATIENT
  Age: 64 Year
  Sex: Female
  Weight: 58 kg

DRUGS (3)
  1. STALEVO [Suspect]
     Active Substance: CARBIDOPA\ENTACAPONE\LEVODOPA
     Indication: Parkinson^s disease
     Dosage: STRENGTH: 200/50/200 MG
     Route: 048
     Dates: start: 2020
  2. STALEVO [Suspect]
     Active Substance: CARBIDOPA\ENTACAPONE\LEVODOPA
     Dosage: STRENGTH: 200/50/200 MG
     Route: 048
  3. ROTIGOTINE [Concomitant]
     Active Substance: ROTIGOTINE
     Dosage: STRENGTH: 8 MG, ONGOING
     Route: 065
     Dates: start: 2020

REACTIONS (3)
  - Parkinson^s disease [Unknown]
  - Wrong technique in product usage process [Not Recovered/Not Resolved]
  - Product prescribing issue [Unknown]

NARRATIVE: CASE EVENT DATE: 20200101
